FAERS Safety Report 5981817-9 (Version None)
Quarter: 2008Q4

REPORT INFORMATION
  Report Type: 
  Country: None (occurrence: None)
  Receive Date: 20081205
  Receipt Date: 20081202
  Transmission Date: 20090506
  Serious: Yes (Other)
  Sender: FDA-Public Use
  Company Number: TW-ABBOTT-08P-153-0489717-00

PATIENT
  Sex: Female

DRUGS (2)
  1. REDUCTIL 10MG [Suspect]
     Indication: DRUG USE FOR UNKNOWN INDICATION
     Route: 048
     Dates: start: 20080815
  2. REDUCTIL 15MG [Suspect]
     Indication: DRUG USE FOR UNKNOWN INDICATION
     Route: 048
     Dates: start: 20080101, end: 20081015

REACTIONS (1)
  - ABORTION [None]
